FAERS Safety Report 23062148 (Version 3)
Quarter: 2024Q1

REPORT INFORMATION
  Report Type: Spontaneous
  Country: JP (occurrence: JP)
  Receive Date: 20231013
  Receipt Date: 20240318
  Transmission Date: 20240410
  Serious: Yes (Hospitalization, Other)
  Sender: FDA-Public Use
  Company Number: JP-ABBVIE-5427573

PATIENT
  Age: 25 Year
  Sex: Male
  Weight: 53 kg

DRUGS (8)
  1. SKYRIZI [Suspect]
     Active Substance: RISANKIZUMAB-RZAA
     Indication: Crohn^s disease
     Dosage: FORM STRENGTH: 600 MILLIGRAM
     Route: 041
     Dates: start: 20230201
  2. TRAMADOL HYDROCHLORIDE AND ACETAMINOPHEN [Concomitant]
     Active Substance: ACETAMINOPHEN\TRAMADOL HYDROCHLORIDE
     Indication: Product used for unknown indication
     Route: 048
  3. LACTOSE [Concomitant]
     Active Substance: LACTOSE
     Indication: Product used for unknown indication
     Route: 048
     Dates: start: 20200717
  4. FLUNITRAZEPAM [Concomitant]
     Active Substance: FLUNITRAZEPAM
     Indication: Product used for unknown indication
     Dosage: 2 MILLIGRAM
     Route: 048
  5. METRONIDAZOLE [Concomitant]
     Active Substance: METRONIDAZOLE
     Indication: Product used for unknown indication
     Dosage: TIME INTERVAL: 0.33333333 DAYS: 750 MILLIGRAM
     Route: 048
     Dates: start: 20200514
  6. ZOPICLONE [Concomitant]
     Active Substance: ZOPICLONE
     Indication: Product used for unknown indication
     Dosage: 10 MILLIGRAM
     Route: 048
  7. VONOPRAZAN FUMARATE [Concomitant]
     Active Substance: VONOPRAZAN FUMARATE
     Indication: Product used for unknown indication
     Dosage: 10 MILLIGRAM
     Route: 048
  8. MERCAPTOPURINE [Concomitant]
     Active Substance: MERCAPTOPURINE
     Indication: Product used for unknown indication
     Route: 048
     Dates: start: 20200717

REACTIONS (1)
  - Ileus [Recovering/Resolving]

NARRATIVE: CASE EVENT DATE: 20230210
